APPROVED DRUG PRODUCT: DOCETAXEL
Active Ingredient: DOCETAXEL
Strength: 160MG/8ML (20MG/ML)
Dosage Form/Route: INJECTABLE;INJECTION
Application: A216677 | Product #003 | TE Code: AP
Applicant: HERITAGE PHARMACEUTICALS INC DBA AVET PHARMACEUTICALS INC
Approved: Nov 26, 2024 | RLD: No | RS: No | Type: RX